FAERS Safety Report 6220327-0 (Version None)
Quarter: 2009Q2

REPORT INFORMATION
  Report Type: 
  Country: None (occurrence: None)
  Receive Date: 20090610
  Receipt Date: 20090528
  Transmission Date: 20091009
  Serious: Yes (Hospitalization)
  Sender: FDA-Public Use
  Company Number: US-RB-015958-09

PATIENT
  Age: 64 Year
  Sex: Female

DRUGS (3)
  1. DELSYM ADULT ORANGE [Suspect]
     Route: 048
     Dates: start: 20090512
  2. DELSYM ADULT ORANGE [Suspect]
     Indication: COUGH
     Route: 048
     Dates: start: 20090512
  3. VICKS DAYQUIL SINUS PRESSURE + PAIN RELIEF W/ IBUPROFEN [Suspect]

REACTIONS (4)
  - ATRIAL FIBRILLATION [None]
  - DIZZINESS [None]
  - DYSPNOEA [None]
  - HEART RATE INCREASED [None]
